FAERS Safety Report 11520464 (Version 1)
Quarter: 2015Q3

REPORT INFORMATION
  Report Type: Report from Study
  Country: US (occurrence: US)
  Receive Date: 20150918
  Receipt Date: 20150918
  Transmission Date: 20151125
  Serious: No
  Sender: FDA-Public Use
  Company Number: PHEH2015US004489

PATIENT
  Sex: Male
  Weight: 117.91 kg

DRUGS (2)
  1. GILENYA [Suspect]
     Active Substance: FINGOLIMOD HYDROCHLORIDE
     Indication: MULTIPLE SCLEROSIS
     Dosage: 0.5 MG, QD
     Route: 048
     Dates: start: 20141124
  2. GILENYA [Suspect]
     Active Substance: FINGOLIMOD HYDROCHLORIDE
     Dosage: 0.5 MG, QD
     Route: 048
     Dates: start: 201412

REACTIONS (9)
  - Balance disorder [Unknown]
  - Feeling abnormal [Unknown]
  - Memory impairment [Unknown]
  - Eye disorder [Unknown]
  - White blood cell count decreased [Recovered/Resolved]
  - Hepatic enzyme decreased [Recovered/Resolved]
  - Depression [Unknown]
  - Hepatic enzyme increased [Unknown]
  - Body temperature increased [Unknown]
